FAERS Safety Report 11158977 (Version 1)
Quarter: 2015Q2

REPORT INFORMATION
  Report Type: Spontaneous
  Country: US (occurrence: None)
  Receive Date: 20150522
  Receipt Date: 20150522
  Transmission Date: 20150821
  Serious: Yes (Hospitalization)
  Sender: FDA-Public Use
  Company Number: 2014GMK009494

PATIENT
  Age: 7 Year
  Sex: Female

DRUGS (3)
  1. TOPIRAMATE (TOPIRAMATE) UNKNOWN [Suspect]
     Active Substance: TOPIRAMATE
     Indication: HEADACHE
  2. CYPROPHEPTADINE (CYPROPHEPTADINE) [Concomitant]
  3. TOPIRAMATE (TOPIRAMATE) UNKNOWN [Suspect]
     Active Substance: TOPIRAMATE
     Indication: SEIZURE

REACTIONS (10)
  - Visual impairment [None]
  - Ocular hyperaemia [None]
  - Eyelid oedema [None]
  - Angle closure glaucoma [None]
  - Off label use [None]
  - Myopia [None]
  - Intraocular pressure increased [None]
  - Lacrimation increased [None]
  - Photophobia [None]
  - Vision blurred [None]
